FAERS Safety Report 5095629-4 (Version None)
Quarter: 2006Q3

REPORT INFORMATION
  Report Type: 
  Country: None (occurrence: None)
  Receive Date: 20060902
  Receipt Date: 20060825
  Transmission Date: 20061208
  Serious: Yes (Hospitalization, Other)
  Sender: FDA-Public Use
  Company Number: JP-ABBOTT-06P-087-0342472-00

PATIENT
  Sex: Male

DRUGS (21)
  1. KALETRA [Suspect]
     Indication: HIV INFECTION
     Route: 048
     Dates: start: 20041222
  2. ZIDOVUDINE [Suspect]
     Indication: HIV INFECTION
     Route: 048
     Dates: start: 20041222, end: 20041230
  3. LAMIVUDINE [Suspect]
     Indication: HIV INFECTION
     Route: 048
     Dates: start: 20041222
  4. ABACAVIR [Suspect]
     Indication: HIV INFECTION
     Route: 048
     Dates: start: 20041231
  5. BACTRIM [Suspect]
     Indication: PNEUMOCYSTIS JIROVECI PNEUMONIA
     Route: 048
     Dates: start: 20041118, end: 20041126
  6. BACTRIM [Suspect]
     Indication: ANTIBIOTIC PROPHYLAXIS
     Route: 048
     Dates: start: 20050315, end: 20050405
  7. BACTRIM [Suspect]
     Route: 048
     Dates: start: 20050421
  8. PENTAMIDINE ISETHIONATE [Concomitant]
     Indication: PNEUMOCYSTIS JIROVECI PNEUMONIA
     Route: 042
     Dates: start: 20041127, end: 20041208
  9. MICAFUNGIN SODIUM [Concomitant]
     Indication: ASPERGILLOSIS
     Dates: start: 20041118, end: 20041217
  10. MICAFUNGIN SODIUM [Concomitant]
     Dates: start: 20041218, end: 20050214
  11. CONCENTRATED GLYCERIN/FRUCTOSE [Concomitant]
     Indication: BRAIN OEDEMA
     Route: 042
     Dates: start: 20041210, end: 20041210
  12. CONCENTRATED GLYCERIN/FRUCTOSE [Concomitant]
     Indication: LYMPHOMA
     Route: 042
     Dates: start: 20041211, end: 20041231
  13. CONCENTRATED GLYCERIN/FRUCTOSE [Concomitant]
     Route: 042
     Dates: start: 20050101, end: 20050124
  14. DEXAMETHASONE SODIUM PHOSPHATE [Concomitant]
     Indication: LYMPHOMA
     Route: 042
     Dates: start: 20041227, end: 20041231
  15. DEXAMETHASONE SODIUM PHOSPHATE [Concomitant]
     Indication: BRAIN OEDEMA
     Route: 042
     Dates: start: 20050101, end: 20050209
  16. DEXAMETHASONE SODIUM PHOSPHATE [Concomitant]
     Route: 042
     Dates: start: 20050210, end: 20050215
  17. DEXAMETHASONE SODIUM PHOSPHATE [Concomitant]
     Route: 042
     Dates: start: 20050216, end: 20060220
  18. DEXAMETHASONE SODIUM PHOSPHATE [Concomitant]
     Route: 048
     Dates: start: 20050221, end: 20050223
  19. DEXAMETHASONE SODIUM PHOSPHATE [Concomitant]
     Route: 048
     Dates: start: 20050224, end: 20050302
  20. SODIUM PICOSULFATE [Concomitant]
     Indication: CONSTIPATION
     Route: 048
     Dates: start: 20041117, end: 20050221
  21. MAGNESIUM OXIDE [Concomitant]
     Indication: CONSTIPATION
     Route: 048
     Dates: start: 20050221

REACTIONS (5)
  - BLOOD ZINC DECREASED [None]
  - DYSGEUSIA [None]
  - HYPERLIPIDAEMIA [None]
  - OTITIS MEDIA [None]
  - PANCYTOPENIA [None]
